FAERS Safety Report 12982555 (Version 1)
Quarter: 2016Q4

REPORT INFORMATION
  Report Type: Spontaneous
  Country: US (occurrence: US)
  Receive Date: 20161129
  Receipt Date: 20161129
  Transmission Date: 20170207
  Serious: Yes (Disabling, Other)
  Sender: FDA-Public Use
  Company Number: None

PATIENT
  Age: 39 Year
  Sex: Female
  Weight: 61.2 kg

DRUGS (1)
  1. VENLAFAXINE (ANY/ALL GENERIC OR VARIOUS [Suspect]
     Active Substance: VENLAFAXINE HYDROCHLORIDE
     Indication: POST-TRAUMATIC STRESS DISORDER
     Dosage: ?          QUANTITY:1 CAPSULE(S);?
     Route: 048
     Dates: start: 20160115, end: 20161128

REACTIONS (7)
  - Activities of daily living impaired [None]
  - Electrocardiogram abnormal [None]
  - Chest pain [None]
  - Drug dose omission [None]
  - Secondary hypertension [None]
  - Withdrawal syndrome [None]
  - Inappropriate schedule of drug administration [None]

NARRATIVE: CASE EVENT DATE: 20161001
